FAERS Safety Report 5415743-0 (Version None)
Quarter: 2007Q3

REPORT INFORMATION
  Report Type: 
  Country: None (occurrence: None)
  Receive Date: 20070815
  Receipt Date: 20070803
  Transmission Date: 20080115
  Serious: Yes (Other)
  Sender: FDA-Public Use
  Company Number: US-PFIZER INC-2007065495

PATIENT
  Sex: Female
  Weight: 59 kg

DRUGS (7)
  1. LYRICA [Suspect]
     Indication: NEUROPATHY
     Route: 048
     Dates: start: 20070501, end: 20070802
  2. LYRICA [Suspect]
     Indication: PAIN IN EXTREMITY
  3. LISINOPRIL [Concomitant]
     Route: 048
  4. FOSAMAX [Concomitant]
     Route: 048
  5. DIURETICS [Concomitant]
     Route: 048
  6. LUNESTA [Concomitant]
     Route: 048
  7. PROPAFENONE HCL [Concomitant]
     Route: 048

REACTIONS (6)
  - DIZZINESS [None]
  - DRUG INEFFECTIVE [None]
  - INTERVERTEBRAL DISC COMPRESSION [None]
  - MALAISE [None]
  - PAIN [None]
  - SOMNOLENCE [None]
